FAERS Safety Report 15367767 (Version 2)
Quarter: 2018Q3

REPORT INFORMATION
  Report Type: Spontaneous
  Country: JP (occurrence: JP)
  Receive Date: 20180910
  Receipt Date: 20180910
  Transmission Date: 20181010
  Serious: Yes (Other)
  Sender: FDA-Public Use
  Company Number: PHHY2018JP088618

PATIENT
  Age: 33 Year
  Sex: Female

DRUGS (4)
  1. RITODRINE [Suspect]
     Active Substance: RITODRINE
     Dosage: 15 MG, UNK
     Route: 065
  2. PREDNISOLONE. [Suspect]
     Active Substance: PREDNISOLONE
     Dosage: 5 MG, QD
     Route: 048
  3. RITODRINE [Suspect]
     Active Substance: RITODRINE
     Indication: ABORTION THREATENED
     Dosage: 100 MG, QD
     Route: 065
  4. PREDNISOLONE. [Suspect]
     Active Substance: PREDNISOLONE
     Indication: IMPETIGO HERPETIFORMIS
     Dosage: 10 MG, QD
     Route: 048

REACTIONS (8)
  - Macule [Recovered/Resolved]
  - Hyperkeratosis [Recovered/Resolved]
  - Impetigo herpetiformis [Recovered/Resolved]
  - Rash erythematous [Recovered/Resolved]
  - Rash pustular [Recovered/Resolved]
  - Premature delivery [Unknown]
  - Maternal exposure during pregnancy [Unknown]
  - Parakeratosis [Recovered/Resolved]
